FAERS Safety Report 5078447-2 (Version None)
Quarter: 2006Q3

REPORT INFORMATION
  Report Type: 
  Country: None (occurrence: None)
  Receive Date: 20060808
  Receipt Date: 20060721
  Transmission Date: 20061208
  Serious: Yes (Hospitalization)
  Sender: FDA-Public Use
  Company Number: FR200607003911

PATIENT
  Age: 78 Year
  Sex: Female

DRUGS (4)
  1. FORTEO [Suspect]
     Indication: OSTEOPOROSIS
     Dosage: 20 UG, DAILY (1/D), SUBCUTANEOUS
     Route: 058
     Dates: start: 20050728, end: 20060709
  2. FORTEO PEN (FORTEO PEN) PEN, DISPOSABLE [Concomitant]
  3. BEDELIX (MONTMORILLONITE) [Concomitant]
  4. ACETAMINOPHEN [Concomitant]

REACTIONS (1)
  - INTESTINAL OBSTRUCTION [None]
